FAERS Safety Report 24796387 (Version 8)
Quarter: 2025Q3

REPORT INFORMATION
  Report Type: Spontaneous
  Country: EU (occurrence: EU)
  Receive Date: 20250101
  Receipt Date: 20250702
  Transmission Date: 20251021
  Serious: Yes (Hospitalization, Other)
  Sender: AUROBINDO
  Company Number: EU-SUN PHARMACEUTICAL INDUSTRIES LTD-2024RR-484411

PATIENT
  Age: 36 Year
  Sex: Female

DRUGS (39)
  1. AMOXICILLIN [Suspect]
     Active Substance: AMOXICILLIN
     Indication: Toothache
     Route: 065
  2. ESCITALOPRAM OXALATE [Interacting]
     Active Substance: ESCITALOPRAM OXALATE
     Indication: Depression
     Route: 065
  3. ESCITALOPRAM OXALATE [Interacting]
     Active Substance: ESCITALOPRAM OXALATE
     Indication: Insomnia
  4. ESCITALOPRAM [Interacting]
     Active Substance: ESCITALOPRAM OXALATE
     Indication: Insomnia
     Dosage: 10 MILLIGRAM, ONCE A DAY (AT NIGHT)
     Route: 065
  5. ESCITALOPRAM [Interacting]
     Active Substance: ESCITALOPRAM OXALATE
     Indication: Depression
  6. ACETAMINOPHEN [Suspect]
     Active Substance: ACETAMINOPHEN
     Indication: Gingival pain
     Route: 065
  7. ACETAMINOPHEN [Suspect]
     Active Substance: ACETAMINOPHEN
     Indication: Toothache
  8. DULOXETINE [Suspect]
     Active Substance: DULOXETINE
     Indication: Pain
     Route: 065
  9. ETORICOXIB [Interacting]
     Active Substance: ETORICOXIB
     Indication: Pain
     Route: 065
  10. PREGABALIN [Suspect]
     Active Substance: PREGABALIN
     Indication: Product used for unknown indication
     Route: 065
  11. IBUPROFEN [Suspect]
     Active Substance: IBUPROFEN
     Indication: Toothache
     Route: 048
  12. TRAZODONE [Suspect]
     Active Substance: TRAZODONE HYDROCHLORIDE
     Indication: Pain
     Route: 065
  13. DOXYLAMINE [Interacting]
     Active Substance: DOXYLAMINE
     Indication: Depression
     Dosage: 25 MILLIGRAM, ONCE A DAY (AT NIGHT)
     Route: 065
  14. DOXYLAMINE [Interacting]
     Active Substance: DOXYLAMINE
     Indication: Sleep disorder
  15. DOXYLAMINE [Interacting]
     Active Substance: DOXYLAMINE
     Indication: Insomnia
  16. METAMIZOLE [Suspect]
     Active Substance: METAMIZOLE
     Indication: Gingival pain
     Route: 065
  17. METAMIZOLE [Suspect]
     Active Substance: METAMIZOLE
     Indication: Toothache
  18. BENZYDAMINE [Suspect]
     Active Substance: BENZYDAMINE
     Indication: Toothache
     Route: 061
  19. BUPRENORPHINE [Suspect]
     Active Substance: BUPRENORPHINE
     Indication: Toothache
  20. BUPRENORPHINE [Suspect]
     Active Substance: BUPRENORPHINE
     Route: 050
  21. CHLORHEXIDINE [Suspect]
     Active Substance: CHLORHEXIDINE
     Indication: Toothache
     Route: 061
  22. CLINDAMYCIN [Suspect]
     Active Substance: CLINDAMYCIN
     Indication: Toothache
     Route: 065
  23. ACETAMINOPHEN\CODEINE PHOSPHATE [Suspect]
     Active Substance: ACETAMINOPHEN\CODEINE PHOSPHATE
     Indication: Toothache
     Route: 065
  24. DIAZEPAM [Suspect]
     Active Substance: DIAZEPAM
     Indication: Toothache
     Route: 065
  25. DICLOFENAC [Suspect]
     Active Substance: DICLOFENAC
     Indication: Toothache
     Route: 061
  26. DICLOFENAC [Suspect]
     Active Substance: DICLOFENAC
     Route: 048
  27. FLURBIPROFEN [Suspect]
     Active Substance: FLURBIPROFEN
     Indication: Toothache
     Route: 061
  28. MORPHINE [Suspect]
     Active Substance: MORPHINE
     Indication: Toothache
     Route: 061
  29. LIDOCAINE HYDROCHLORIDE [Suspect]
     Active Substance: LIDOCAINE HYDROCHLORIDE
     Indication: Toothache
     Route: 061
  30. OXYCODONE [Suspect]
     Active Substance: OXYCODONE
     Indication: Toothache
     Route: 065
  31. OXYCODONE [Suspect]
     Active Substance: OXYCODONE
     Indication: Analgesic therapy
     Route: 065
  32. IPIDACRINE [Suspect]
     Active Substance: IPIDACRINE
     Indication: Product used for unknown indication
     Route: 065
  33. XYLOCAINE [Suspect]
     Active Substance: LIDOCAINE HYDROCHLORIDE
     Indication: Toothache
     Route: 065
  34. KETOPROFEN [Suspect]
     Active Substance: KETOPROFEN
     Indication: Toothache
     Route: 065
  35. OXYCODONE [Concomitant]
     Active Substance: OXYCODONE
     Indication: Toothache
     Route: 065
  36. OXYCODONE [Concomitant]
     Active Substance: OXYCODONE
     Indication: Analgesic therapy
  37. KETOPROFEN [Concomitant]
     Active Substance: KETOPROFEN
     Indication: Toothache
     Route: 065
  38. KETOPROFEN [Concomitant]
     Active Substance: KETOPROFEN
     Indication: Analgesic therapy
  39. IPIDACRINE [Concomitant]
     Active Substance: IPIDACRINE
     Indication: Product used for unknown indication
     Route: 065

REACTIONS (9)
  - Toothache [Recovering/Resolving]
  - Hyperaesthesia [Recovered/Resolved]
  - Central pain syndrome [Recovered/Resolved]
  - Dry mouth [Unknown]
  - Somnolence [Unknown]
  - Drug ineffective [Unknown]
  - Drug interaction [Recovered/Resolved]
  - Off label use [Unknown]
  - Gingival pain [Recovering/Resolving]
